FAERS Safety Report 24201281 (Version 1)
Quarter: 2024Q3

REPORT INFORMATION
  Report Type: Report from Study
  Country: US (occurrence: US)
  Receive Date: 20240812
  Receipt Date: 20240812
  Transmission Date: 20241016
  Serious: No
  Sender: ASTELLAS
  Company Number: US-ASTELLAS-2024US022627

PATIENT

DRUGS (1)
  1. FEZOLINETANT [Suspect]
     Active Substance: FEZOLINETANT
     Indication: Hot flush
     Dosage: UNK, UNKNOWN FREQ.
     Route: 065
     Dates: start: 202407, end: 20240807

REACTIONS (3)
  - Hepatic steatosis [Unknown]
  - Insomnia [Unknown]
  - Pollakiuria [Unknown]
